FAERS Safety Report 9565472 (Version 1)
Quarter: 2013Q3

REPORT INFORMATION
  Report Type: Spontaneous
  Country: US (occurrence: US)
  Receive Date: 20130930
  Receipt Date: 20130930
  Transmission Date: 20140515
  Serious: No
  Sender: FDA-Public Use
  Company Number: US-PFIZER INC-2013277034

PATIENT
  Sex: Female

DRUGS (4)
  1. ZYVOX [Suspect]
     Indication: MYCOBACTERIUM CHELONAE INFECTION
     Dosage: 600 MG, 2X/DAY
     Route: 048
     Dates: start: 20130912
  2. CLARITHROMYCIN [Suspect]
     Indication: MYCOBACTERIUM CHELONAE INFECTION
     Dosage: 500 MG, 2X/DAY
     Route: 048
     Dates: start: 20130912
  3. LIPITOR [Concomitant]
     Indication: BLOOD CHOLESTEROL ABNORMAL
     Dosage: UNK
  4. ATENOLOL [Concomitant]
     Dosage: UNK

REACTIONS (2)
  - Drug ineffective [Not Recovered/Not Resolved]
  - Pain in extremity [Not Recovered/Not Resolved]
